FAERS Safety Report 8561594-8 (Version None)
Quarter: 2012Q3

REPORT INFORMATION
  Report Type: 
  Country: None (occurrence: None)
  Receive Date: 20120802
  Receipt Date: 20120716
  Transmission Date: 20120928
  Serious: No
  Sender: FDA-Public Use
  Company Number: US-ASTRAZENECA-2012SE49417

PATIENT
  Age: 41 Year
  Sex: Male
  Weight: 83.9 kg

DRUGS (5)
  1. SEROQUEL [Suspect]
     Indication: SLEEP DISORDER
     Route: 048
  2. VIAGRA [Suspect]
     Indication: LOSS OF LIBIDO
     Route: 048
  3. LEVITRA [Suspect]
     Route: 065
  4. CIALIS [Suspect]
     Route: 065
  5. ZOLOFT [Suspect]
     Indication: AGITATION
     Route: 065

REACTIONS (6)
  - INTENTIONAL DRUG MISUSE [None]
  - LIBIDO DECREASED [None]
  - FLAT AFFECT [None]
  - FATIGUE [None]
  - AGITATION [None]
  - OFF LABEL USE [None]
